FAERS Safety Report 23038026 (Version 1)
Quarter: 2023Q4

REPORT INFORMATION
  Report Type: Spontaneous
  Country: US (occurrence: US)
  Receive Date: 20231006
  Receipt Date: 20231006
  Transmission Date: 20240110
  Serious: Yes (Hospitalization, Other)
  Sender: FDA-Public Use
  Company Number: US-PFIZER INC-2010170490

PATIENT
  Age: 85 Year
  Sex: Male

DRUGS (16)
  1. DILTIAZEM HYDROCHLORIDE [Interacting]
     Active Substance: DILTIAZEM HYDROCHLORIDE
     Dosage: UNK
  2. FENTANYL CITRATE [Interacting]
     Active Substance: FENTANYL CITRATE
     Indication: Musculoskeletal chest pain
     Dosage: 75 UG (75MCG/HR)
     Route: 041
  3. FENTANYL CITRATE [Interacting]
     Active Substance: FENTANYL CITRATE
     Dosage: 25 UG  (AFTER 2DAYS:25MCG/HR)
     Route: 041
  4. FENTANYL [Interacting]
     Active Substance: FENTANYL
     Indication: Non-small cell lung cancer
     Dosage: 150 UG (150 MCG EVERY 72 HOURS)
     Route: 062
  5. FENTANYL [Interacting]
     Active Substance: FENTANYL
     Indication: Musculoskeletal chest pain
  6. COLACE [Concomitant]
     Active Substance: DOCUSATE SODIUM
     Dosage: 300 MG, UNK
  7. MORNIFLUMATE [Concomitant]
     Active Substance: MORNIFLUMATE
     Indication: Benign prostatic hyperplasia
     Dosage: 0.4 MG, UNK
  8. GEMCITABINE [Concomitant]
     Active Substance: GEMCITABINE
     Indication: Lung neoplasm malignant
     Dosage: UNK
  9. OXYCODONE [Concomitant]
     Active Substance: OXYCODONE
     Indication: Musculoskeletal chest pain
     Dosage: UNK UNK, AS NEEDED (15 MG- 30MG EVERY 4 HOURS AS NEEDED)
  10. PREVACID [Concomitant]
     Active Substance: LANSOPRAZOLE
     Indication: Gastrooesophageal reflux disease
     Dosage: 30 MG, UNK
  11. RANITIDINE [Concomitant]
     Active Substance: RANITIDINE
     Indication: Gastrooesophageal reflux disease
     Dosage: 300 MG (300 MG AT BEDTIME)
  12. PIPERACILLIN AND TAZOBACTAM [Concomitant]
     Active Substance: PIPERACILLIN SODIUM\TAZOBACTAM SODIUM
     Indication: Pneumonia
     Dosage: UNK
  13. SENNA LEAF [Concomitant]
     Active Substance: SENNA LEAF
     Dosage: 2 DF, 3X/DAY (2 TABLETS THREE TIMES A DAY)
     Route: 048
  14. TAMSULOSIN [Concomitant]
     Active Substance: TAMSULOSIN
     Dosage: UNK
  15. VANCOMYCIN HYDROCHLORIDE [Concomitant]
     Active Substance: VANCOMYCIN HYDROCHLORIDE
     Indication: Pneumonia
     Dosage: UNK
  16. VINORELBINE [Concomitant]
     Active Substance: VINORELBINE TARTRATE
     Indication: Lung neoplasm malignant
     Dosage: UNK

REACTIONS (3)
  - Drug interaction [Recovered/Resolved]
  - Delirium [Recovered/Resolved]
  - Condition aggravated [Recovered/Resolved]
